FAERS Safety Report 6874922-6 (Version None)
Quarter: 2010Q2

REPORT INFORMATION
  Report Type: 
  Country: None (occurrence: None)
  Receive Date: 20100610
  Receipt Date: 20100510
  Transmission Date: 20101027
  Serious: No
  Sender: FDA-Public Use
  Company Number: 2010SP026377

PATIENT
  Age: 47 Year
  Sex: Female

DRUGS (2)
  1. SAPHRIS [Suspect]
     Indication: BIPOLAR DISORDER
     Dosage: 5 MG;QD;PO; 5 MG;BID;PO
     Dates: start: 20100324
  2. SAPHRIS [Suspect]
     Indication: BIPOLAR DISORDER
     Dosage: 5 MG;QD;PO; 5 MG;BID;PO
     Dates: start: 20100408

REACTIONS (4)
  - INCORRECT ROUTE OF DRUG ADMINISTRATION [None]
  - INCREASED APPETITE [None]
  - RESTLESS LEGS SYNDROME [None]
  - WEIGHT INCREASED [None]
